FAERS Safety Report 8157488-2 (Version None)
Quarter: 2012Q1

REPORT INFORMATION
  Report Type: 
  Country: None (occurrence: None)
  Receive Date: 20120222
  Receipt Date: 20120213
  Transmission Date: 20120608
  Serious: Yes (Hospitalization)
  Sender: FDA-Public Use
  Company Number: FR-ASTRAZENECA-2011SE75120

PATIENT
  Age: 42 Year
  Sex: Male

DRUGS (4)
  1. NEXIUM [Concomitant]
     Indication: GASTROOESOPHAGEAL REFLUX DISEASE
     Route: 048
     Dates: start: 20110828
  2. PLAVIX [Concomitant]
     Route: 048
     Dates: start: 20110828
  3. ASPIRIN [Concomitant]
     Route: 048
     Dates: start: 20110828
  4. CRESTOR [Suspect]
     Indication: CARDIOVASCULAR EVENT PROPHYLAXIS
     Route: 048
     Dates: start: 20110828, end: 20111121

REACTIONS (1)
  - INTERSTITIAL LUNG DISEASE [None]
